FAERS Safety Report 16786412 (Version 2)
Quarter: 2019Q4

REPORT INFORMATION
  Report Type: Spontaneous
  Country: AU (occurrence: AU)
  Receive Date: 20190909
  Receipt Date: 20191003
  Transmission Date: 20200122
  Serious: Yes (Other)
  Sender: FDA-Public Use
  Company Number: AU-MYLANLABS-2019M1083161

PATIENT
  Age: 41 Year
  Sex: Female

DRUGS (18)
  1. CLOZARIL [Suspect]
     Active Substance: CLOZAPINE
     Dosage: 4 DOSAGE FORM, PM
     Route: 048
     Dates: start: 20051007
  2. CLOZARIL [Suspect]
     Active Substance: CLOZAPINE
     Indication: SCHIZOPHRENIA
     Dosage: UNK
     Route: 048
     Dates: start: 200509
  3. BETAMETHASONE VALERATE. [Concomitant]
     Active Substance: BETAMETHASONE VALERATE
     Dosage: UNK, BID (IF NEEDED)
  4. CLOZARIL [Suspect]
     Active Substance: CLOZAPINE
     Indication: SCHIZOPHRENIA
     Dosage: UNK
     Route: 048
     Dates: start: 200509
  5. MACROLAX [Concomitant]
     Dosage: UNK, QD
  6. ARIPIPRAZOLE. [Concomitant]
     Active Substance: ARIPIPRAZOLE
     Dosage: 1 DOSAGE FORM, AM (DAILY)
  7. SODIUM VALPROATE [Concomitant]
     Active Substance: VALPROATE SODIUM
     Dosage: 1 DOSAGE FORM, BID
  8. MULTI B-FORTE [Concomitant]
     Active Substance: ASCORBIC ACID\NIACINAMIDE\PYRIDOXINE HYDROCHLORIDE\RIBOFLAVIN\THIAMINE HYDROCHLORIDE
     Dosage: UNK, QD (1 TABLET)
  9. PARACETAMOL [Concomitant]
     Active Substance: ACETAMINOPHEN
     Indication: PYREXIA
  10. PARACHOC [Concomitant]
     Indication: CONSTIPATION
     Dosage: 30 MILLILITER, PRN UP TO BID
  11. PARACETAMOL [Concomitant]
     Active Substance: ACETAMINOPHEN
     Indication: PAIN
     Dosage: 2 DOSAGE FORM, PRN UP TO QDS
  12. MACROGOL 3350 [Concomitant]
     Active Substance: POLYETHYLENE GLYCOL 3350
     Dosage: UNK
  13. COLOXYL                            /00061602/ [Concomitant]
     Active Substance: DOCUSATE SODIUM
     Dosage: UNK, PM (1-2 BEFORE BED)
  14. NORETHISTERONE [Concomitant]
     Active Substance: NORETHINDRONE
     Dosage: 1 DOSAGE FORM, QD
  15. BETADINE [Concomitant]
     Active Substance: POVIDONE-IODINE
     Dosage: UNK, TID
  16. CLOZARIL [Suspect]
     Active Substance: CLOZAPINE
     Dosage: 1 DOSAGE FORM, AM
     Route: 048
     Dates: start: 20051007
  17. OXYBUTYNIN. [Concomitant]
     Active Substance: OXYBUTYNIN CHLORIDE
     Dosage: 0.5 DOSAGE FORM, BID
  18. KWELLS [Concomitant]
     Active Substance: SCOPOLAMINE HYDROBROMIDE
     Dosage: 0.5 DOSAGE FORM, QD

REACTIONS (8)
  - Cardiomyopathy [Unknown]
  - Alanine aminotransferase increased [Unknown]
  - Constipation [Unknown]
  - Glomerular filtration rate decreased [Unknown]
  - Mitral valve incompetence [Unknown]
  - Tricuspid valve incompetence [Unknown]
  - Blood creatine phosphokinase increased [Unknown]
  - Blood urea increased [Unknown]

NARRATIVE: CASE EVENT DATE: 20180411
